FAERS Safety Report 6173733-7 (Version None)
Quarter: 2009Q2

REPORT INFORMATION
  Report Type: 
  Country: None (occurrence: None)
  Receive Date: 20090430
  Receipt Date: 20090422
  Transmission Date: 20091009
  Serious: Yes (Other)
  Sender: FDA-Public Use
  Company Number: PHHY2009CA15405

PATIENT
  Sex: Female

DRUGS (4)
  1. ACLASTA [Suspect]
     Indication: OSTEOPOROSIS
     Dosage: UNK
     Dates: start: 20090408
  2. NEXIUM [Concomitant]
     Dosage: 40 MG, QD
  3. CALCIUM [Concomitant]
  4. VITAMIN D [Concomitant]

REACTIONS (5)
  - ABASIA [None]
  - HYPOKINESIA [None]
  - MALAISE [None]
  - MYALGIA [None]
  - PYREXIA [None]
